FAERS Safety Report 10015728 (Version 2)
Quarter: 2014Q1

REPORT INFORMATION
  Report Type: Spontaneous
  Country: US (occurrence: US)
  Receive Date: 20140317
  Receipt Date: 20140321
  Transmission Date: 20141002
  Serious: Yes (Hospitalization, Other)
  Sender: FDA-Public Use
  Company Number: US-009507513-1403USA006574

PATIENT
  Sex: Female

DRUGS (1)
  1. MAXALT MLT [Suspect]
     Indication: MIGRAINE
     Dosage: 10 MG AS NEEDED
     Route: 048
     Dates: start: 201103

REACTIONS (4)
  - Partial lung resection [Recovered/Resolved]
  - Pulmonary bulla [Recovered/Resolved]
  - Pneumothorax [Recovered/Resolved]
  - Therapeutic procedure [Recovered/Resolved]
